FAERS Safety Report 4394762-X (Version None)
Quarter: 2004Q3

REPORT INFORMATION
  Report Type: 
  Country: None (occurrence: None)
  Receive Date: 20040707
  Receipt Date: 20040621
  Transmission Date: 20050211
  Serious: Yes (Hospitalization)
  Sender: FDA-Public Use
  Company Number: US-JNJFOC-20031102534

PATIENT
  Age: 79 Year
  Sex: Male

DRUGS (11)
  1. DURAGESIC [Suspect]
     Indication: PAIN
     Dosage: 25 UG/HR, 1 IN 72 HOUR; TRANSDERMAL (SEE I MAGE)
     Route: 062
     Dates: start: 20030108, end: 20031104
  2. DURAGESIC [Suspect]
     Indication: PAIN
     Dosage: 25 UG/HR, 1 IN 72 HOUR; TRANSDERMAL (SEE I MAGE)
     Route: 062
     Dates: start: 20031104, end: 20031105
  3. NEURONTIN [Concomitant]
  4. CARDURA [Concomitant]
  5. LOTENSIN [Concomitant]
  6. HCTZ (HYDROCHLOROTHIAZDE) [Concomitant]
  7. MOBIC [Concomitant]
  8. NEXIUM [Concomitant]
  9. AMBIEN [Concomitant]
  10. LORTAB [Concomitant]
  11. ULTRACET (TRAMADOL/APAP) [Concomitant]

REACTIONS (5)
  - DEHYDRATION [None]
  - MOBILITY DECREASED [None]
  - NAUSEA [None]
  - STOMACH DISCOMFORT [None]
  - VOMITING [None]
